FAERS Safety Report 16094798 (Version 2)
Quarter: 2019Q1

REPORT INFORMATION
  Report Type: Report from Study
  Country: US (occurrence: US)
  Receive Date: 20190320
  Receipt Date: 20190322
  Transmission Date: 20190418
  Serious: Yes (Other)
  Sender: FDA-Public Use
  Company Number: US-BEH-2019100376

PATIENT

DRUGS (1)
  1. BERIPLEX P/N [Suspect]
     Active Substance: COAGULATION FACTOR IX HUMAN\COAGULATION FACTOR VII HUMAN\COAGULATION FACTOR X HUMAN\PROTEIN C\PROTEIN S HUMAN\PROTHROMBIN
     Indication: COAGULOPATHY
     Route: 065

REACTIONS (6)
  - Acute kidney injury [Recovered/Resolved]
  - Fluid overload [Recovered/Resolved]
  - Pneumonia [Recovered/Resolved]
  - Arrhythmia [Recovered/Resolved]
  - Respiratory failure [Recovered/Resolved]
  - Atrial fibrillation [Recovered/Resolved]

NARRATIVE: CASE EVENT DATE: 20190212
